FAERS Safety Report 17061592 (Version 1)
Quarter: 2019Q4

REPORT INFORMATION
  Report Type: Report from Study
  Country: CO (occurrence: CO)
  Receive Date: 20191121
  Receipt Date: 20191121
  Transmission Date: 20200122
  Serious: Yes (Hospitalization)
  Sender: FDA-Public Use
  Company Number: CO-INCYTE CORPORATION-2019IN011522

PATIENT

DRUGS (1)
  1. JAKAVI [Suspect]
     Active Substance: RUXOLITINIB
     Indication: MYELOFIBROSIS
     Dosage: 10 MG, QD
     Route: 048

REACTIONS (5)
  - Malaise [Unknown]
  - Abdominal pain [Unknown]
  - Syncope [Unknown]
  - Hyperhidrosis [Unknown]
  - Inappropriate schedule of product administration [Unknown]
